FAERS Safety Report 7440324-7 (Version None)
Quarter: 2011Q2

REPORT INFORMATION
  Report Type: 
  Country: None (occurrence: None)
  Receive Date: 20110427
  Receipt Date: 20101223
  Transmission Date: 20111010
  Serious: Yes (Hospitalization, Other)
  Sender: FDA-Public Use
  Company Number: US-BAYER-201028668NA

PATIENT
  Age: 24 Year
  Sex: Female
  Weight: 99.773 kg

DRUGS (15)
  1. YASMIN [Suspect]
     Indication: MENORRHAGIA
     Dosage: UNK
     Dates: start: 20051101, end: 20080601
  2. DROSPIRENONE AND ETHINYL ESTRADIOL [Suspect]
     Indication: POLYCYSTIC OVARIES
  3. FLEXERIL [Concomitant]
  4. YASMIN [Suspect]
     Indication: POLYCYSTIC OVARIES
  5. GLUCOPHAGE [Concomitant]
  6. NASONEX [Concomitant]
     Indication: HYPERSENSITIVITY
     Dosage: UNK
     Dates: start: 20060401
  7. FEXOFENADINE [Concomitant]
     Indication: HYPERSENSITIVITY
     Dosage: DAILY
     Dates: start: 20060301
  8. MIRALAX [Concomitant]
  9. DROSPIRENONE AND ETHINYL ESTRADIOL [Suspect]
     Indication: MENORRHAGIA
     Dosage: UNK
     Dates: start: 20080627, end: 20080710
  10. METFORMIN [Concomitant]
     Indication: POLYCYSTIC OVARIES
     Dosage: 500 MG, BID
     Dates: start: 20051101
  11. AMBIEN [Concomitant]
  12. METHYLPREDNISOLONE [Concomitant]
     Dosage: UNK
     Dates: start: 20080301, end: 20080701
  13. SINGULAIR [Concomitant]
     Indication: HYPERSENSITIVITY
     Dosage: DAILY
     Dates: start: 20060401
  14. ALLEGRA [Concomitant]
  15. DAYPRO [Concomitant]

REACTIONS (9)
  - PULMONARY EMBOLISM [None]
  - MUSCULOSKELETAL DISCOMFORT [None]
  - BACK PAIN [None]
  - OEDEMA PERIPHERAL [None]
  - PAINFUL RESPIRATION [None]
  - FATIGUE [None]
  - DEEP VEIN THROMBOSIS [None]
  - GROIN PAIN [None]
  - PULMONARY INFARCTION [None]
